FAERS Safety Report 4831461-1 (Version None)
Quarter: 2005Q4

REPORT INFORMATION
  Report Type: 
  Country: None (occurrence: None)
  Receive Date: 20051118
  Receipt Date: 20051107
  Transmission Date: 20060501
  Serious: Yes (Death, Hospitalization)
  Sender: FDA-Public Use
  Company Number: DE-JNJFOC-20051101674

PATIENT
  Age: 54 Year
  Sex: Male

DRUGS (4)
  1. REMICADE [Suspect]
     Dosage: 5TH INFUSION
     Route: 042
  2. REMICADE [Suspect]
     Indication: POLYARTHRITIS
     Dosage: 4 INFUSIONS
     Route: 042
  3. METHOTREXATE [Concomitant]
     Indication: ARTHRITIS
     Route: 065
  4. ARAVA [Concomitant]
     Indication: ARTHRITIS
     Route: 065

REACTIONS (11)
  - ACUTE RESPIRATORY DISTRESS SYNDROME [None]
  - FISTULA [None]
  - JOINT ABSCESS [None]
  - MASTITIS [None]
  - MYOCARDIAL INFARCTION [None]
  - PLEURAL EFFUSION [None]
  - PULMONARY OEDEMA [None]
  - RENAL FAILURE [None]
  - SEPSIS [None]
  - STAPHYLOCOCCAL INFECTION [None]
  - SYSTEMIC INFLAMMATORY RESPONSE SYNDROME [None]
